FAERS Safety Report 11893560 (Version 1)
Quarter: 2016Q1

REPORT INFORMATION
  Report Type: Report from Study
  Country: BR (occurrence: BR)
  Receive Date: 20160106
  Receipt Date: 20160106
  Transmission Date: 20160526
  Serious: Yes (Hospitalization, Other)
  Sender: FDA-Public Use
  Company Number: PHHY2016BR000766

PATIENT
  Age: 69 Year
  Sex: Female
  Weight: 92 kg

DRUGS (1)
  1. SEEBRI BREEZHALER [Suspect]
     Active Substance: GLYCOPYRROLATE
     Indication: LUNG DISORDER
     Dosage: 50 MG, QD
     Route: 055
     Dates: start: 201509

REACTIONS (7)
  - Respiratory tract infection [Unknown]
  - Neck pain [Unknown]
  - Chest pain [Unknown]
  - Lung disorder [Unknown]
  - Tendonitis [Unknown]
  - Concomitant disease aggravated [Unknown]
  - Ear disorder [Unknown]

NARRATIVE: CASE EVENT DATE: 20151105
